FAERS Safety Report 7474924-5 (Version None)
Quarter: 2011Q2

REPORT INFORMATION
  Report Type: 
  Country: None (occurrence: None)
  Receive Date: 20110505
  Receipt Date: 20110420
  Transmission Date: 20111010
  Serious: Yes (Other)
  Sender: FDA-Public Use
  Company Number: GB-DEXPHARM-20110461

PATIENT
  Age: 84 Year
  Sex: Female

DRUGS (3)
  1. ENOXAPARIN SODIUM [Concomitant]
  2. ASCORBIC ACID [Concomitant]
  3. OMEPRAZOLE [Suspect]
     Indication: GASTRITIS
     Dosage: DOSE: 20 MG MILLIGRAM(S)
     Route: 048
     Dates: start: 20110331, end: 20110331

REACTIONS (3)
  - OXYGEN SATURATION DECREASED [None]
  - LIP SWELLING [None]
  - SWOLLEN TONGUE [None]
